FAERS Safety Report 16320227 (Version 1)
Quarter: 2019Q2

REPORT INFORMATION
  Report Type: Spontaneous
  Country: US (occurrence: US)
  Receive Date: 20190516
  Receipt Date: 20190516
  Transmission Date: 20190711
  Serious: No
  Sender: FDA-Public Use
  Company Number: US-BAUSCH-BL-2019-012963

PATIENT
  Age: 52 Year
  Sex: Female
  Weight: 86.26 kg

DRUGS (2)
  1. OPCON-A [Suspect]
     Active Substance: NAPHAZOLINE HYDROCHLORIDE\PHENIRAMINE MALEATE
     Indication: HYPERSENSITIVITY
     Dosage: 2 DROPS IN EACH EYE
     Route: 047
     Dates: start: 20190422, end: 20190428
  2. GENVOYA [Concomitant]
     Active Substance: COBICISTAT\ELVITEGRAVIR\EMTRICITABINE\TENOFOVIR ALAFENAMIDE FUMARATE
     Indication: PRODUCT USED FOR UNKNOWN INDICATION

REACTIONS (2)
  - Eyelid disorder [Recovering/Resolving]
  - Abnormal sensation in eye [Recovering/Resolving]

NARRATIVE: CASE EVENT DATE: 201904
